FAERS Safety Report 9077674 (Version 3)
Quarter: 2013Q2

REPORT INFORMATION
  Report Type: Report from Study
  Country: US (occurrence: US)
  Receive Date: 20130130
  Receipt Date: 20130628
  Transmission Date: 20140414
  Serious: Yes (Hospitalization)
  Sender: FDA-Public Use
  Company Number: US-ABBOTT-12P-163-0952317-00

PATIENT
  Age: 38 Year
  Sex: Male
  Weight: 115.77 kg

DRUGS (13)
  1. HUMIRA [Suspect]
     Indication: RHEUMATOID ARTHRITIS
     Dates: start: 201105
  2. HUMIRA [Suspect]
     Indication: CROHN^S DISEASE
  3. HUMIRA [Suspect]
     Indication: CROHN^S DISEASE
  4. HUMIRA [Suspect]
     Indication: RHEUMATOID ARTHRITIS
     Dates: start: 20120509
  5. ADVAIR [Concomitant]
     Indication: LUNG DISORDER
  6. LYRICA [Concomitant]
     Indication: FIBROMYALGIA
  7. THEOPHYLLINE [Concomitant]
     Indication: LUNG DISORDER
  8. ALBUTEROL [Concomitant]
     Indication: LUNG DISORDER
     Dosage: NEBULIZER
  9. ALBUTEROL [Concomitant]
     Indication: LUNG DISORDER
     Dosage: INHALER
  10. APRISO [Concomitant]
     Indication: CROHN^S DISEASE
  11. APRISO [Concomitant]
     Indication: CROHN^S DISEASE
  12. APRISO [Concomitant]
     Indication: GASTRIC DISORDER
  13. METHOTREXATE [Concomitant]
     Indication: LUNG DISORDER

REACTIONS (11)
  - Rectal haemorrhage [Recovered/Resolved]
  - Crohn^s disease [Not Recovered/Not Resolved]
  - Vomiting [Recovered/Resolved]
  - Injection site bruising [Recovered/Resolved]
  - Injection site rash [Unknown]
  - Injection site erythema [Unknown]
  - Psoriasis [Not Recovered/Not Resolved]
  - Onychomadesis [Not Recovered/Not Resolved]
  - White blood cell count decreased [Not Recovered/Not Resolved]
  - Inflammatory marker increased [Unknown]
  - Abdominal pain [Not Recovered/Not Resolved]
